FAERS Safety Report 6207942-5 (Version None)
Quarter: 2009Q2

REPORT INFORMATION
  Report Type: 
  Country: None (occurrence: None)
  Receive Date: 20090529
  Receipt Date: 20080905
  Transmission Date: 20091009
  Serious: Yes (Hospitalization)
  Sender: FDA-Public Use
  Company Number: A0739209A

PATIENT
  Age: 52 Year
  Sex: Female
  Weight: 59.1 kg

DRUGS (6)
  1. VENTOLIN [Suspect]
     Indication: ASTHMA
     Dosage: 2PUFF AS REQUIRED
     Route: 055
     Dates: start: 20080626
  2. ADVAIR HFA [Concomitant]
     Route: 055
  3. RAMIPRIL [Concomitant]
  4. PREMARIN [Concomitant]
  5. MEDROXYPROGESTERONE [Concomitant]
  6. LORAZEPAM [Concomitant]

REACTIONS (1)
  - CHEST PAIN [None]
